FAERS Safety Report 4312985-2 (Version None)
Quarter: 2004Q1

REPORT INFORMATION
  Report Type: 
  Country: None (occurrence: None)
  Receive Date: 20040224
  Receipt Date: 20040213
  Transmission Date: 20041129
  Serious: Yes (Hospitalization)
  Sender: FDA-Public Use
  Company Number: 2003-03402

PATIENT
  Age: 79 Year
  Sex: Male

DRUGS (9)
  1. IMMUCYST (BCG - IT (CONNAUGHT)), AVENTIS PASTEUR [Suspect]
     Indication: BLADDER CANCER
     Dosage: 81.0 MG (81. 0 MG) B. IN., BLADDER
     Dates: start: 20031024, end: 20031101
  2. IMMUNOBLADDER (BCG TOKYO STRAIN), OTHER MFR, LOT NOT REP [Suspect]
     Indication: BLADDER CANCER
     Dosage: (80.0 MG) B.IN.
     Dates: start: 20030909, end: 20031017
  3. URAPIDOL [Concomitant]
  4. POLYCARBOPHIL [Concomitant]
  5. ZOPICLONE [Concomitant]
  6. CEFPODOXIM PROXETIL [Concomitant]
  7. DICLOFENAC [Concomitant]
  8. NAFTOPIDIL [Concomitant]
  9. MOSAPRIDE [Concomitant]

REACTIONS (6)
  - ABDOMINAL PAIN LOWER [None]
  - ANOREXIA [None]
  - CYSTITIS [None]
  - NEPHROPATHY [None]
  - URINARY BLADDER ATROPHY [None]
  - VESICOURETERIC REFLUX [None]
